FAERS Safety Report 24342532 (Version 3)
Quarter: 2025Q2

REPORT INFORMATION
  Report Type: Report from Study
  Country: CO (occurrence: CO)
  Receive Date: 20240920
  Receipt Date: 20250402
  Transmission Date: 20250716
  Serious: Yes (Other)
  Sender: UCB
  Company Number: CO-UCBSA-2024048247

PATIENT
  Age: 10 Year
  Sex: Male

DRUGS (3)
  1. LACOSAMIDE [Suspect]
     Active Substance: LACOSAMIDE
     Indication: Epilepsy
     Dosage: 6 MILLILITER, 2X/DAY (BID)
     Route: 048
     Dates: start: 20230502
  2. LACOSAMIDE [Suspect]
     Active Substance: LACOSAMIDE
  3. KETOTIFEN [Suspect]
     Active Substance: KETOTIFEN
     Indication: Pyrexia
     Dosage: 5 MILLILITER, 2X/DAY (BID)
     Route: 048
     Dates: start: 20240914, end: 20240915

REACTIONS (7)
  - Seizure [Recovered/Resolved]
  - Delirium febrile [Recovered/Resolved]
  - Productive cough [Unknown]
  - Pyrexia [Unknown]
  - Muscle rigidity [Recovered/Resolved]
  - Headache [Recovered/Resolved]
  - Product dispensing issue [Unknown]

NARRATIVE: CASE EVENT DATE: 20240911
